FAERS Safety Report 5705589-8 (Version None)
Quarter: 2008Q2

REPORT INFORMATION
  Report Type: 
  Country: None (occurrence: None)
  Receive Date: 20080411
  Receipt Date: 20080326
  Transmission Date: 20081010
  Serious: Yes (Other)
  Sender: FDA-Public Use
  Company Number: 2008JP000724

PATIENT
  Age: 57 Year
  Sex: Male
  Weight: 62 kg

DRUGS (9)
  1. PROGRAF [Suspect]
     Indication: RENAL TRANSPLANT
     Dosage: 6 MG, BID, ORAL
     Route: 048
     Dates: start: 20061102
  2. CELLCEPT [Suspect]
     Indication: RENAL TRANSPLANT
     Dosage: 625 MG, BID, ORAL
     Route: 048
     Dates: start: 20061102, end: 20061204
  3. PREDNISOLONE TAB [Suspect]
     Indication: RENAL TRANSPLANT
     Dosage: 25 MG, BID, ORAL
     Route: 048
     Dates: start: 20061102
  4. SPANIDIN (GUSPERIMUS HYDROCHLORIDE) INJECTION [Concomitant]
  5. RITUXAN [Concomitant]
  6. SOLU-MEDROL [Concomitant]
  7. PREDNISOLONE [Concomitant]
  8. BREDININ (MIZORIBINE) TABLET [Concomitant]
  9. FUNGUARD (MICAFUNGIN) INJECTION [Concomitant]

REACTIONS (3)
  - ANASTOMOTIC ULCER HAEMORRHAGE [None]
  - BRONCHOPULMONARY ASPERGILLOSIS [None]
  - CYTOMEGALOVIRUS INFECTION [None]
